FAERS Safety Report 4929259-9 (Version None)
Quarter: 2006Q1

REPORT INFORMATION
  Report Type: 
  Country: None (occurrence: None)
  Receive Date: 20060301
  Receipt Date: 20060221
  Transmission Date: 20060701
  Serious: Yes (Death)
  Sender: FDA-Public Use
  Company Number: US-SANOFI-SYNTHELABO-A03200601005

PATIENT
  Sex: Male
  Weight: 86.17 kg

DRUGS (2)
  1. PLAVIX [Suspect]
     Indication: ARTERIAL OCCLUSIVE DISEASE
     Route: 048
     Dates: start: 20010101
  2. TRENTAL [Concomitant]
     Dosage: UNK
     Route: 048

REACTIONS (1)
  - GASTRIC CANCER [None]
